FAERS Safety Report 9528363 (Version 1)
Quarter: 2013Q3

REPORT INFORMATION
  Report Type: Report from Study
  Country: US (occurrence: US)
  Receive Date: 20130917
  Receipt Date: 20130917
  Transmission Date: 20140515
  Serious: Yes (Hospitalization)
  Sender: FDA-Public Use
  Company Number: US-SANOFI-AVENTIS-2013SA090512

PATIENT
  Sex: Female

DRUGS (2)
  1. AUBAGIO [Suspect]
     Route: 048
     Dates: start: 20130507, end: 20130601
  2. AUBAGIO [Suspect]
     Route: 048
     Dates: start: 20130630

REACTIONS (5)
  - Adverse event [Unknown]
  - Malaise [Unknown]
  - Pain [Unknown]
  - Infection [Unknown]
  - Drug dose omission [Unknown]
